FAERS Safety Report 8906237 (Version 1)
Quarter: 2012Q4

REPORT INFORMATION
  Report Type: 
  Country: US (occurrence: None)
  Receive Date: 20121108
  Receipt Date: 20121108
  Transmission Date: 20130627
  Serious: Yes (Hospitalization)
  Sender: FDA-Public Use
  Company Number: 2012MA012821

PATIENT
  Age: 52 Year
  Sex: Female

DRUGS (1)
  1. M-ZOLE [Suspect]
     Indication: YEAST INFECTION
     Dates: start: 20121015, end: 20121016

REACTIONS (1)
  - Drug ineffective [None]
